FAERS Safety Report 4477211-2 (Version None)
Quarter: 2004Q4

REPORT INFORMATION
  Report Type: 
  Country: None (occurrence: None)
  Receive Date: 20041018
  Receipt Date: 20041005
  Transmission Date: 20050328
  Serious: Yes (Other)
  Sender: FDA-Public Use
  Company Number: US-MERCK-0410USA00763

PATIENT
  Age: 58 Year
  Sex: Female

DRUGS (9)
  1. DARVOCET-N 100 [Concomitant]
     Route: 065
  2. ELAVIL [Concomitant]
     Route: 048
  3. LIPITOR [Concomitant]
     Route: 065
  4. LASIX [Concomitant]
     Route: 065
  5. PROCARDIA [Concomitant]
     Route: 065
  6. PRILOSEC [Concomitant]
     Route: 065
  7. K-DUR 10 [Concomitant]
     Route: 065
  8. VIOXX [Suspect]
     Indication: ARTHRITIS
     Route: 048
     Dates: start: 20021112, end: 20040613
  9. VIOXX [Suspect]
     Route: 048

REACTIONS (8)
  - ARTHROPATHY [None]
  - BACTERIA URINE IDENTIFIED [None]
  - BLOOD CHOLESTEROL INCREASED [None]
  - BLOOD TRIGLYCERIDES INCREASED [None]
  - CARDIAC FLUTTER [None]
  - LOW DENSITY LIPOPROTEIN DECREASED [None]
  - OVERDOSE [None]
  - WHITE BLOOD CELLS URINE POSITIVE [None]
